FAERS Safety Report 5557405-5 (Version None)
Quarter: 2007Q4

REPORT INFORMATION
  Report Type: 
  Country: None (occurrence: None)
  Receive Date: 20071214
  Receipt Date: 20071207
  Transmission Date: 20080405
  Serious: Yes (Hospitalization)
  Sender: FDA-Public Use
  Company Number: GB-SANOFI-SYNTHELABO-A01200709395

PATIENT
  Sex: Male

DRUGS (4)
  1. XELODA [Suspect]
     Indication: RECTAL CANCER
     Route: 048
     Dates: start: 20070625
  2. XELODA [Suspect]
     Indication: METASTASES TO LIVER
     Route: 048
     Dates: start: 20070625
  3. ELOXATIN [Suspect]
     Indication: RECTAL CANCER
     Route: 042
     Dates: start: 20070714, end: 20070714
  4. ELOXATIN [Suspect]
     Indication: METASTASES TO LIVER
     Route: 042
     Dates: start: 20070714, end: 20070714

REACTIONS (3)
  - ABDOMINAL PAIN [None]
  - PERIPHERAL ISCHAEMIA [None]
  - VOMITING [None]
